FAERS Safety Report 9467472 (Version 3)
Quarter: 2013Q3

REPORT INFORMATION
  Report Type: Report from Study
  Country: CA (occurrence: CA)
  Receive Date: 20130821
  Receipt Date: 20130822
  Transmission Date: 20140515
  Serious: Yes (Death)
  Sender: FDA-Public Use
  Company Number: PHHY2013CA043918

PATIENT
  Age: 44 Year
  Sex: Male

DRUGS (4)
  1. ZOMETA [Suspect]
     Indication: RENAL CANCER METASTATIC
     Dosage: 4 MG, ONCE EVERY 4 WEEKS
     Route: 042
     Dates: start: 20130425
  2. ZOMETA [Suspect]
     Dosage: 4 MG, EVERY 4 WEEKS
     Route: 042
  3. PAMIDRONATE [Suspect]
     Indication: RENAL CANCER METASTATIC
     Dosage: UNK UKN, UNK
     Route: 042
     Dates: start: 20130421
  4. ONDANSETRON [Concomitant]
     Dosage: 4 MG, TID

REACTIONS (2)
  - Death [Fatal]
  - Urinary tract infection [Unknown]
